FAERS Safety Report 16155398 (Version 1)
Quarter: 2019Q2

REPORT INFORMATION
  Report Type: Spontaneous
  Country: US (occurrence: US)
  Receive Date: 20190403
  Receipt Date: 20190403
  Transmission Date: 20190711
  Serious: No
  Sender: FDA-Public Use
  Company Number: US-009507513-1903USA004891

PATIENT
  Sex: Female
  Weight: 48.08 kg

DRUGS (2)
  1. FOSAMAX [Suspect]
     Active Substance: ALENDRONATE SODIUM
     Indication: OSTEOPOROSIS
     Dosage: 70 MILLIGRAM, QW
     Route: 048
     Dates: start: 20180604, end: 20180618
  2. CALTRATE WITH VITAMIN D [Suspect]
     Active Substance: CALCIUM CARBONATE\CHOLECALCIFEROL
     Indication: OSTEOPOROSIS
     Dosage: UNK
     Dates: start: 20180628, end: 20180710

REACTIONS (9)
  - Product quality issue [Unknown]
  - Dizziness [Unknown]
  - Pain [Unknown]
  - Bone pain [Unknown]
  - Nausea [Unknown]
  - Dysgeusia [Not Recovered/Not Resolved]
  - Headache [Unknown]
  - Temporomandibular joint syndrome [Unknown]
  - Taste disorder [Unknown]

NARRATIVE: CASE EVENT DATE: 201806
